FAERS Safety Report 4831945-6 (Version None)
Quarter: 2005Q4

REPORT INFORMATION
  Report Type: 
  Country: None (occurrence: None)
  Receive Date: 20051116
  Receipt Date: 20051104
  Transmission Date: 20060501
  Serious: Yes (Hospitalization)
  Sender: FDA-Public Use
  Company Number: S05-ESP-04485-01

PATIENT
  Age: 78 Year
  Sex: Female

DRUGS (5)
  1. ESCITALOPRAM OXALATE [Suspect]
     Dosage: 5 MG PO
     Route: 048
     Dates: end: 20050127
  2. HIGROTONA (CHLORTALIDONE) [Suspect]
     Dosage: 50 MG PO
     Route: 048
     Dates: end: 20050127
  3. LEVOTHROID [Concomitant]
  4. NEOSIDANTOINA (PHENYTOIN SODIUM) [Concomitant]
  5. LEVOFLOXACIN [Concomitant]

REACTIONS (5)
  - COMA [None]
  - DYSPNOEA [None]
  - GRAND MAL CONVULSION [None]
  - HYPONATRAEMIA [None]
  - URINARY INCONTINENCE [None]
